FAERS Safety Report 24127336 (Version 4)
Quarter: 2024Q4

REPORT INFORMATION
  Report Type: Report from Study
  Country: BE (occurrence: BE)
  Receive Date: 20240723
  Receipt Date: 20241024
  Transmission Date: 20250115
  Serious: Yes (Hospitalization)
  Sender: SANDOZ
  Company Number: BE-002147023-NVSC2024BE147948

PATIENT
  Age: 60 Year
  Sex: Female
  Weight: 61 kg

DRUGS (8)
  1. FULVESTRANT [Suspect]
     Active Substance: FULVESTRANT
     Indication: Hormone receptor positive HER2 negative breast cancer
     Dosage: 500 MG, QMO
     Route: 030
     Dates: start: 20231220
  2. PERINDOPRIL [Concomitant]
     Active Substance: PERINDOPRIL
     Indication: Hypertension
     Dosage: UNK
     Route: 065
     Dates: start: 201301
  3. CRESTOR [Concomitant]
     Active Substance: ROSUVASTATIN CALCIUM
     Indication: Hypercholesterolaemia
     Dosage: UNK
     Route: 065
     Dates: start: 202209
  4. DAFALGAN [Concomitant]
     Active Substance: ACETAMINOPHEN
     Indication: Back pain
     Dosage: UNK
     Route: 065
     Dates: start: 20240705, end: 20240712
  5. TEMOCILLIN [Concomitant]
     Active Substance: TEMOCILLIN
     Indication: Pyelonephritis
     Dosage: UNK
     Route: 065
     Dates: start: 20240703, end: 20240712
  6. TRAMADOL [Concomitant]
     Active Substance: TRAMADOL
     Indication: Back pain
     Dosage: UNK
     Route: 065
     Dates: start: 20240705, end: 20240708
  7. TRAMADOL [Concomitant]
     Active Substance: TRAMADOL
     Indication: Back pain
     Route: 065
  8. ZINACEF [Concomitant]
     Active Substance: CEFUROXIME SODIUM
     Indication: Pyelonephritis
     Dosage: UNK
     Route: 065
     Dates: start: 20240630, end: 20240703

REACTIONS (1)
  - Inflammation [Recovered/Resolved with Sequelae]

NARRATIVE: CASE EVENT DATE: 20240708
